FAERS Safety Report 20947986 (Version 1)
Quarter: 2022Q2

REPORT INFORMATION
  Report Type: Spontaneous
  Country: CL (occurrence: CL)
  Receive Date: 20220611
  Receipt Date: 20220611
  Transmission Date: 20220721
  Serious: Yes (Other)
  Sender: FDA-Public Use
  Company Number: CL-NOVARTISPH-NVSC2022CL131410

PATIENT

DRUGS (2)
  1. OXALIPLATIN [Suspect]
     Active Substance: OXALIPLATIN
     Indication: Product used for unknown indication
     Dosage: 110 MG
     Route: 065
     Dates: start: 20210809
  2. LEUCOVORIN [Suspect]
     Active Substance: LEUCOVORIN
     Indication: Product used for unknown indication
     Dosage: 680 MG
     Route: 065
     Dates: start: 20210809

REACTIONS (7)
  - Neuropathy peripheral [Unknown]
  - Altered state of consciousness [Unknown]
  - Head discomfort [Unknown]
  - Hypotension [Unknown]
  - General physical condition abnormal [Unknown]
  - Dysarthria [Unknown]
  - Dyspnoea [Unknown]

NARRATIVE: CASE EVENT DATE: 20210809
